FAERS Safety Report 22646720 (Version 2)
Quarter: 2023Q2

REPORT INFORMATION
  Report Type: Spontaneous
  Country: US (occurrence: US)
  Receive Date: 20230627
  Receipt Date: 20230628
  Transmission Date: 20230722
  Serious: No
  Sender: FDA-Public Use
  Company Number: US-002147023-NVSC2023US145976

PATIENT
  Sex: Male

DRUGS (1)
  1. PROMACTA [Suspect]
     Active Substance: ELTROMBOPAG OLAMINE
     Indication: Pancytopenia
     Dosage: 75 MG, QD
     Route: 048

REACTIONS (3)
  - Contusion [Unknown]
  - Product use issue [Unknown]
  - Product use in unapproved indication [Unknown]
